FAERS Safety Report 7632242-6 (Version None)
Quarter: 2011Q3

REPORT INFORMATION
  Report Type: 
  Country: None (occurrence: None)
  Receive Date: 20110725
  Receipt Date: 20100729
  Transmission Date: 20111222
  Serious: No
  Sender: FDA-Public Use
  Company Number: US-BRISTOL-MYERS SQUIBB COMPANY-15176241

PATIENT
  Age: 80 Year
  Sex: Female

DRUGS (8)
  1. TOPROL-XL [Concomitant]
  2. ALLEGRA [Concomitant]
     Dosage: 1DF=180[UNIT NI]
  3. COUMADIN [Suspect]
     Indication: ATRIAL FIBRILLATION
     Dates: start: 20100501
  4. VERAMYST [Concomitant]
  5. ZITHROMAX [Concomitant]
  6. DIOVAN HCT [Concomitant]
     Dosage: 1DF=320/12.5
  7. LIPITOR [Concomitant]
  8. ZOCOR [Concomitant]
     Dosage: 1DF=40[UNIT NI]

REACTIONS (2)
  - INTERNATIONAL NORMALISED RATIO DECREASED [None]
  - SINUSITIS [None]
